FAERS Safety Report 15854130 (Version 1)
Quarter: 2019Q1

REPORT INFORMATION
  Report Type: Spontaneous
  Country: US (occurrence: US)
  Receive Date: 20190122
  Receipt Date: 20190122
  Transmission Date: 20190417
  Serious: No
  Sender: FDA-Public Use
  Company Number: US-HORIZON-PEN-0049-2019

PATIENT
  Sex: Male

DRUGS (1)
  1. PENNSAID [Suspect]
     Active Substance: DICLOFENAC SODIUM
     Indication: PROCEDURAL PAIN

REACTIONS (5)
  - Pain [Not Recovered/Not Resolved]
  - Therapy cessation [Not Recovered/Not Resolved]
  - Off label use [Not Recovered/Not Resolved]
  - Insurance issue [Not Recovered/Not Resolved]
  - Inability to afford medication [Not Recovered/Not Resolved]
